FAERS Safety Report 5240588-4 (Version None)
Quarter: 2007Q1

REPORT INFORMATION
  Report Type: 
  Country: None (occurrence: None)
  Receive Date: 20061208
  Receipt Date: 20051108
  Transmission Date: 20070707
  Serious: Yes (Other)
  Sender: FDA-Public Use
  Company Number: 2005UW16935

PATIENT
  Age: 64 Year
  Sex: Male
  Weight: 115.21 kg

DRUGS (12)
  1. CRESTOR [Suspect]
     Indication: BLOOD CHOLESTEROL INCREASED
     Dosage: 10 MG DAILY PO
     Route: 048
     Dates: start: 20051027
  2. GLYBURIDE [Concomitant]
  3. DYAZIDE [Concomitant]
  4. GLUCOPHAGE [Concomitant]
  5. ENALAPRIL MALEATE [Concomitant]
  6. PRILOSEC [Concomitant]
  7. ASPIRIN [Concomitant]
  8. NITROGLYCERIN [Concomitant]
  9. PROPRANOLOL [Concomitant]
  10. PLAVIX [Concomitant]
  11. ISOSORB [Concomitant]
  12. ALEVE [Concomitant]

REACTIONS (2)
  - AGEUSIA [None]
  - DYSGEUSIA [None]
